FAERS Safety Report 5489571-4 (Version None)
Quarter: 2007Q4

REPORT INFORMATION
  Report Type: 
  Country: None (occurrence: None)
  Receive Date: 20071016
  Receipt Date: 20071016
  Transmission Date: 20080405
  Serious: Yes (Hospitalization)
  Sender: FDA-Public Use
  Company Number: None

PATIENT
  Age: 60 Year
  Sex: Female
  Weight: 90 kg

DRUGS (2)
  1. LUVOX [Suspect]
     Dosage: 200 MG  BID  PO
     Route: 048
  2. TOPAMAX [Suspect]
     Dosage: 100 MG  BID  PO
     Route: 048

REACTIONS (3)
  - DECREASED ACTIVITY [None]
  - INCONTINENCE [None]
  - SEROTONIN SYNDROME [None]
